FAERS Safety Report 11997637 (Version 1)
Quarter: 2016Q1

REPORT INFORMATION
  Report Type: Spontaneous
  Country: US (occurrence: US)
  Receive Date: 20160203
  Receipt Date: 20160203
  Transmission Date: 20160526
  Serious: No
  Sender: FDA-Public Use
  Company Number: US-ANACOR-2015ANA00174

PATIENT
  Age: 71 Year
  Sex: Male
  Weight: 71.66 kg

DRUGS (4)
  1. POTASSIUM CITRATE. [Concomitant]
     Active Substance: POTASSIUM CITRATE
     Dosage: UNK
  2. UNSPECIFIED STEROID INJECTIONS [Concomitant]
     Dosage: UNK
  3. KERYDIN [Suspect]
     Active Substance: TAVABOROLE
     Indication: ONYCHOMYCOSIS
     Dosage: UNK UNK, UP TO 4X/WEEK
     Route: 061
     Dates: start: 20150914, end: 20151029
  4. ATENOLOL. [Concomitant]
     Active Substance: ATENOLOL
     Dosage: 25 MG, UP TO 2X/DAY
     Dates: start: 2014

REACTIONS (4)
  - Nail disorder [Recovered/Resolved]
  - Inappropriate schedule of drug administration [Recovered/Resolved]
  - Application site discolouration [Recovered/Resolved]
  - Application site exfoliation [Recovered/Resolved]

NARRATIVE: CASE EVENT DATE: 201510
